FAERS Safety Report 5089046-0 (Version None)
Quarter: 2006Q3

REPORT INFORMATION
  Report Type: 
  Country: None (occurrence: None)
  Receive Date: 20060825
  Receipt Date: 20060818
  Transmission Date: 20061208
  Serious: Yes (Death)
  Sender: FDA-Public Use
  Company Number: 2006SE04466

PATIENT
  Age: 79 Year
  Sex: Male

DRUGS (6)
  1. KENZEN [Suspect]
     Indication: HYPERTENSION
     Route: 048
     Dates: start: 20060214, end: 20060317
  2. DIAMICRON [Suspect]
     Indication: DIABETES MELLITUS NON-INSULIN-DEPENDENT
     Route: 048
     Dates: end: 20060317
  3. LASILIX [Concomitant]
     Indication: HYPERTENSION
     Route: 048
  4. PREVISCAN [Concomitant]
     Indication: ATRIAL FIBRILLATION
     Route: 048
     Dates: end: 20060317
  5. IMOVANE [Concomitant]
     Indication: INSOMNIA
     Route: 048
  6. CARDENSIEL [Concomitant]
     Indication: CARDIAC FAILURE
     Route: 048
     Dates: start: 20060214, end: 20060317

REACTIONS (11)
  - BLADDER CANCER [None]
  - BRADYCARDIA [None]
  - DEHYDRATION [None]
  - DIALYSIS [None]
  - HAEMOGLOBIN DECREASED [None]
  - HYPERKALAEMIA [None]
  - HYPOGLYCAEMIA [None]
  - METABOLIC ACIDOSIS [None]
  - RECTAL CANCER [None]
  - RENAL FAILURE ACUTE [None]
  - SHOCK [None]
